FAERS Safety Report 16339023 (Version 1)
Quarter: 2019Q2

REPORT INFORMATION
  Report Type: Spontaneous
  Country: US (occurrence: US)
  Receive Date: 20190521
  Receipt Date: 20190521
  Transmission Date: 20190711
  Serious: No
  Sender: FDA-Public Use
  Company Number: US-MYLANLABS-2019M1042505

PATIENT
  Sex: Male
  Weight: 122 kg

DRUGS (1)
  1. PROCTOFOAM HC [Suspect]
     Active Substance: HYDROCORTISONE ACETATE\PRAMOXINE HYDROCHLORIDE
     Indication: RASH
     Dosage: UNK UNK, TID

REACTIONS (4)
  - Anxiety [Unknown]
  - Depressed mood [Unknown]
  - Heart rate increased [Unknown]
  - Insomnia [Unknown]
